APPROVED DRUG PRODUCT: TZ-3
Active Ingredient: TIOCONAZOLE
Strength: 1%
Dosage Form/Route: CREAM;TOPICAL
Application: N018682 | Product #001
Applicant: PFIZER LABORATORIES DIV PFIZER INC
Approved: Feb 18, 1983 | RLD: No | RS: No | Type: DISCN